FAERS Safety Report 5842520-9 (Version None)
Quarter: 2008Q3

REPORT INFORMATION
  Report Type: 
  Country: None (occurrence: None)
  Receive Date: 20080812
  Receipt Date: 20080801
  Transmission Date: 20090109
  Serious: Yes (Hospitalization, Other)
  Sender: FDA-Public Use
  Company Number: GB-PFIZER INC-2007007305

PATIENT
  Age: 50 Year
  Sex: Female

DRUGS (3)
  1. CLINDAMYCIN HYDROCHLORIDE [Suspect]
     Indication: OSTEOMYELITIS
     Route: 048
  2. CIPROFLOXACIN [Suspect]
     Indication: OSTEOMYELITIS
     Route: 048
  3. FLOXACILLIN SODIUM [Concomitant]

REACTIONS (1)
  - TENDON RUPTURE [None]
